FAERS Safety Report 17615034 (Version 4)
Quarter: 2023Q1

REPORT INFORMATION
  Report Type: Spontaneous
  Country: US (occurrence: US)
  Receive Date: 20200402
  Receipt Date: 20230302
  Transmission Date: 20230418
  Serious: Yes (Other)
  Sender: FDA-Public Use
  Company Number: US-PFIZER INC-2020134280

PATIENT
  Age: 57 Year
  Sex: Female
  Weight: 82.993 kg

DRUGS (1)
  1. XELJANZ [Suspect]
     Active Substance: TOFACITINIB CITRATE
     Indication: Colitis ulcerative
     Dosage: 10 MG, 2X/DAY
     Route: 048
     Dates: start: 20190604

REACTIONS (8)
  - Rectal haemorrhage [Recovered/Resolved]
  - Condition aggravated [Recovered/Resolved]
  - Therapeutic response unexpected [Unknown]
  - Cough [Not Recovered/Not Resolved]
  - Nasopharyngitis [Unknown]
  - Dysphonia [Unknown]
  - Aphonia [Unknown]
  - Speech disorder [Unknown]

NARRATIVE: CASE EVENT DATE: 20200101
